FAERS Safety Report 4510658-4 (Version None)
Quarter: 2004Q4

REPORT INFORMATION
  Report Type: 
  Country: None (occurrence: None)
  Receive Date: 20041123
  Receipt Date: 20041111
  Transmission Date: 20050328
  Serious: Yes (Death, Hospitalization)
  Sender: FDA-Public Use
  Company Number: 2004-UK-01033UK

PATIENT
  Age: 80 Year
  Sex: Male

DRUGS (6)
  1. MORPHINE [Suspect]
     Indication: PAIN
     Dosage: IV
     Route: 042
  2. FELDENE [Suspect]
     Indication: PAIN
  3. CELEBREX [Suspect]
     Indication: BACK PAIN
  4. NEURONTIN [Suspect]
     Indication: BACK PAIN
  5. IRBESARTAN [Suspect]
     Indication: HYPERTENSION
  6. PROZAC [Suspect]
     Indication: DEPRESSION

REACTIONS (16)
  - ATRIAL FIBRILLATION [None]
  - BLOOD CREATININE INCREASED [None]
  - BLOOD PH INCREASED [None]
  - BLOOD POTASSIUM DECREASED [None]
  - BLOOD SODIUM DECREASED [None]
  - CARDIOMEGALY [None]
  - DIARRHOEA [None]
  - ELECTROLYTE IMBALANCE [None]
  - MYOCARDIAL INFARCTION [None]
  - NEUTROPHIL COUNT INCREASED [None]
  - OLIGURIA [None]
  - PULMONARY OEDEMA [None]
  - RESPIRATORY ALKALOSIS [None]
  - VENTRICULAR FIBRILLATION [None]
  - VOMITING [None]
  - WHITE BLOOD CELL COUNT INCREASED [None]
